FAERS Safety Report 5720898-4 (Version None)
Quarter: 2008Q2

REPORT INFORMATION
  Report Type: 
  Country: None (occurrence: None)
  Receive Date: 20080425
  Receipt Date: 20080425
  Transmission Date: 20081010
  Serious: Yes (Life-Threatening)
  Sender: FDA-Public Use
  Company Number: None

PATIENT
  Age: 59 Year
  Sex: Female
  Weight: 108.8633 kg

DRUGS (3)
  1. LYRICA [Suspect]
     Indication: FIBROMYALGIA
     Dosage: 100 MG BID PO
     Route: 048
     Dates: start: 20071215, end: 20080214
  2. PERCOCET [Concomitant]
  3. COREG [Concomitant]

REACTIONS (3)
  - DEPRESSION [None]
  - FLAT AFFECT [None]
  - SUICIDAL IDEATION [None]
